FAERS Safety Report 10213878 (Version 1)
Quarter: 2014Q2

REPORT INFORMATION
  Report Type: Spontaneous
  Country: US (occurrence: None)
  Receive Date: 20140602
  Receipt Date: 20140602
  Transmission Date: 20141212
  Serious: Yes (Disabling, Other)
  Sender: FDA-Public Use
  Company Number: None

PATIENT
  Age: 61 Year
  Sex: Female
  Weight: 65.32 kg

DRUGS (2)
  1. LEVOFLOXACIN LEVAQUIN [Suspect]
     Indication: SINUSITIS
     Dosage: 500 MG/2 X DAILY -- TAKEN BY MOUTH
     Route: 048
     Dates: start: 20140516, end: 20140520
  2. LEVOFLOXACIN LEVAQUIN [Suspect]
     Indication: BRONCHITIS
     Dosage: 500 MG/2 X DAILY -- TAKEN BY MOUTH
     Route: 048
     Dates: start: 20140516, end: 20140520

REACTIONS (4)
  - Muscular weakness [None]
  - Insomnia [None]
  - No reaction on previous exposure to drug [None]
  - Tendonitis [None]
